FAERS Safety Report 8392669-4 (Version None)
Quarter: 2012Q2

REPORT INFORMATION
  Report Type: 
  Country: None (occurrence: None)
  Receive Date: 20120529
  Receipt Date: 20120523
  Transmission Date: 20120825
  Serious: Yes (Death)
  Sender: FDA-Public Use
  Company Number: AU-ASTRAZENECA-2010SE34500

PATIENT
  Age: 23320 Day
  Sex: Male

DRUGS (1)
  1. ZOLADEX [Suspect]
     Route: 058
     Dates: start: 20090601

REACTIONS (2)
  - MULTI-ORGAN FAILURE [None]
  - WEIGHT INCREASED [None]
